FAERS Safety Report 8190905-0 (Version None)
Quarter: 2012Q1

REPORT INFORMATION
  Report Type: 
  Country: None (occurrence: None)
  Receive Date: 20120307
  Receipt Date: 20120227
  Transmission Date: 20120608
  Serious: Yes (Death, Hospitalization, Other)
  Sender: FDA-Public Use
  Company Number: CZ-CELGENEUS-217-21880-11071307

PATIENT
  Sex: Female
  Weight: 64 kg

DRUGS (24)
  1. REVLIMID [Suspect]
     Dosage: 15 MILLIGRAM
     Route: 048
     Dates: start: 20110627, end: 20110710
  2. HERPESIN [Concomitant]
     Indication: ANTIVIRAL PROPHYLAXIS
     Dosage: 400 MILLIGRAM
     Route: 065
     Dates: start: 20110417, end: 20110711
  3. CEFUROXIME [Concomitant]
     Indication: INFECTION
     Dosage: 1000 MILLIGRAM
     Route: 048
     Dates: start: 20110623, end: 20110627
  4. NUTRIDRINK [Concomitant]
     Route: 048
     Dates: start: 20110613
  5. ANOPYRIN [Concomitant]
     Indication: ANTICOAGULANT THERAPY
     Dosage: 100 MILLIGRAM
     Route: 048
     Dates: start: 20110417
  6. AUGMENTIN '125' [Concomitant]
     Route: 048
     Dates: start: 20110530, end: 20110612
  7. NEURONTIN [Concomitant]
     Dosage: 300 MILLIGRAM
     Route: 048
     Dates: start: 20101004, end: 20110505
  8. NUTRIDRINK [Concomitant]
     Dosage: 200 MILLILITER
     Route: 048
     Dates: start: 20110711, end: 20110719
  9. CALCIUM [Concomitant]
     Indication: OSTEOPOROSIS
     Dosage: 1000 MILLIGRAM
     Route: 048
     Dates: start: 20051001
  10. LANSOPROL [Concomitant]
     Indication: PROPHYLAXIS AGAINST GASTROINTESTINAL ULCER
     Dosage: 15 MILLIGRAM
     Route: 048
     Dates: start: 20090617, end: 20110711
  11. XALATAN [Concomitant]
     Indication: GLAUCOMA
     Dosage: 1 DROPS
     Route: 047
  12. REVLIMID [Suspect]
     Dosage: 25 MILLIGRAM
     Route: 048
     Dates: start: 20110516, end: 20110528
  13. TIMOLOL MALEATE [Concomitant]
     Indication: GLAUCOMA
     Dosage: 1 DROPS
     Route: 047
  14. CIPROFLOXACIN [Concomitant]
     Dosage: 500 MILLIGRAM
     Route: 048
     Dates: start: 20110417, end: 20110711
  15. PALLADONE SR [Concomitant]
     Route: 048
     Dates: start: 20101213
  16. FRAGMIN [Concomitant]
     Indication: ANTICOAGULANT THERAPY
     Dosage: 5000 J
     Route: 058
     Dates: start: 20110509, end: 20110724
  17. DEXAMETHASONE [Suspect]
     Indication: MYELOMA RECURRENCE
     Route: 048
     Dates: start: 20110418, end: 20110509
  18. DEXAMETHASONE [Suspect]
     Route: 048
     Dates: start: 20110627, end: 20110711
  19. IBANDRONATE SODIUM [Concomitant]
     Dosage: 50 MILLIGRAM
     Route: 048
     Dates: start: 20091001, end: 20110711
  20. MICARDIS PLUS 80 [Concomitant]
     Indication: HYPERTENSION
     Route: 048
  21. DEXAMETHASONE [Suspect]
     Route: 048
     Dates: start: 20110516, end: 20110606
  22. AUGMENTIN '125' [Concomitant]
     Indication: FEBRILE NEUTROPENIA
     Dosage: 3.6 GRAM
     Route: 041
     Dates: start: 20110711, end: 20110712
  23. VITAMIN AD [Concomitant]
     Indication: OSTEOPOROSIS
     Dosage: 1 GUTTA
     Route: 048
     Dates: start: 20051001
  24. REVLIMID [Suspect]
     Indication: MYELOMA RECURRENCE
     Dosage: 25 MILLIGRAM
     Route: 048
     Dates: start: 20110418, end: 20110508

REACTIONS (3)
  - FEBRILE NEUTROPENIA [None]
  - CARDIAC FAILURE [None]
  - GASTROINTESTINAL STROMAL TUMOUR [None]
